FAERS Safety Report 15148279 (Version 3)
Quarter: 2025Q2

REPORT INFORMATION
  Report Type: Spontaneous
  Country: PL (occurrence: PL)
  Receive Date: 20180716
  Receipt Date: 20250506
  Transmission Date: 20250717
  Serious: Yes (Life-Threatening, Other)
  Sender: MYLAN
  Company Number: PL-ADAMED-00101660

PATIENT
  Age: 43 Year
  Sex: Female

DRUGS (6)
  1. VALPROIC ACID [Suspect]
     Active Substance: VALPROIC ACID
     Indication: Product used for unknown indication
  2. QUETIAPINE [Suspect]
     Active Substance: QUETIAPINE
     Indication: Product used for unknown indication
  3. AMITRIPTYLINE [Suspect]
     Active Substance: AMITRIPTYLINE
     Indication: Product used for unknown indication
  4. SERTRALINE [Suspect]
     Active Substance: SERTRALINE HYDROCHLORIDE
     Indication: Product used for unknown indication
     Dosage: 150 MILLIGRAM, QD (150 MILLIGRAM, ONCE A DAY)
  5. PERAZINE [Concomitant]
     Active Substance: PERAZINE
     Indication: Product used for unknown indication
     Dosage: 200 MILLIGRAM, QD (00 MILLIGRAM, ONCE A DAY)
  6. VALPROIC ACID [Concomitant]
     Active Substance: VALPROIC ACID
     Indication: Product used for unknown indication
     Dosage: 1300 MILLIGRAM, QD (1300 MILLIGRAM, ONCE A DAY)

REACTIONS (7)
  - Loss of consciousness [Unknown]
  - Depressed mood [Unknown]
  - Suicide attempt [Unknown]
  - Drug abuse [Unknown]
  - Dizziness [Unknown]
  - Toxicity to various agents [Unknown]
  - Overdose [Unknown]
